FAERS Safety Report 4322391-2 (Version None)
Quarter: 2004Q1

REPORT INFORMATION
  Report Type: 
  Country: None (occurrence: None)
  Receive Date: 20040323
  Receipt Date: 20040323
  Transmission Date: 20041129
  Serious: Yes (Hospitalization)
  Sender: FDA-Public Use
  Company Number: None

PATIENT
  Age: 92 Year
  Sex: Female

DRUGS (2)
  1. SULFAMETHOXAZOLE + TRIMETHOPRIM [Suspect]
     Indication: URINARY TRACT INFECTION
     Dosage: BID ORAL
     Route: 048
     Dates: start: 20040115, end: 20040116
  2. CIPROFLOXACIN [Suspect]
     Indication: URINARY TRACT INFECTION
     Dosage: ORAL
     Route: 048
     Dates: start: 20040117, end: 20040118

REACTIONS (7)
  - ERYTHEMA [None]
  - EYE SWELLING [None]
  - HYPERSENSITIVITY [None]
  - OEDEMA PERIPHERAL [None]
  - RASH [None]
  - STEVENS-JOHNSON SYNDROME [None]
  - SWELLING FACE [None]
